FAERS Safety Report 7362957-9 (Version None)
Quarter: 2011Q1

REPORT INFORMATION
  Report Type: 
  Country: None (occurrence: None)
  Receive Date: 20110321
  Receipt Date: 20070411
  Transmission Date: 20110831
  Serious: No
  Sender: FDA-Public Use
  Company Number: 2007BI008110

PATIENT
  Sex: Female

DRUGS (1)
  1. TYSABRI [Suspect]
     Indication: MULTIPLE SCLEROSIS
     Route: 042
     Dates: start: 20070309

REACTIONS (8)
  - ABASIA [None]
  - ASTHENIA [None]
  - HEADACHE [None]
  - MOBILITY DECREASED [None]
  - MUSCLE SPASMS [None]
  - FALL [None]
  - STRESS [None]
  - URINARY INCONTINENCE [None]
